FAERS Safety Report 14063480 (Version 1)
Quarter: 2017Q4

REPORT INFORMATION
  Report Type: Report from Study
  Country: US (occurrence: US)
  Receive Date: 20171009
  Receipt Date: 20171009
  Transmission Date: 20180321
  Serious: No
  Sender: FDA-Public Use
  Company Number: US-AMGEN-USASL2017073420

PATIENT
  Age: 60 Year
  Sex: Female

DRUGS (1)
  1. PROLIA [Suspect]
     Active Substance: DENOSUMAB
     Indication: RHEUMATOID ARTHRITIS
     Dosage: 60 MG, Q6MO
     Route: 058

REACTIONS (5)
  - Myalgia [Not Recovered/Not Resolved]
  - Off label use [Unknown]
  - Insomnia [Unknown]
  - Adverse event [Unknown]
  - Dizziness [Unknown]

NARRATIVE: CASE EVENT DATE: 201701
